FAERS Safety Report 19570716 (Version 2)
Quarter: 2021Q3

REPORT INFORMATION
  Report Type: Spontaneous
  Country: US (occurrence: US)
  Receive Date: 20210716
  Receipt Date: 20210723
  Transmission Date: 20211014
  Serious: Yes (Life-Threatening, Hospitalization, Other)
  Sender: FDA-Public Use
  Company Number: US-ASTRAZENECA-2021A620336

PATIENT
  Age: 19959 Day
  Sex: Female
  Weight: 80.7 kg

DRUGS (5)
  1. RIBOCICLIB. [Suspect]
     Active Substance: RIBOCICLIB
     Indication: ENZYME INHIBITION
     Route: 048
  2. FEMARA [Concomitant]
     Active Substance: LETROZOLE
  3. PALBOCICLIB [Suspect]
     Active Substance: PALBOCICLIB
     Route: 048
  4. FULVESTRANT. [Suspect]
     Active Substance: FULVESTRANT
     Indication: BREAST CANCER METASTATIC
     Route: 030
     Dates: start: 20210701, end: 20210701
  5. FULVESTRANT. [Suspect]
     Active Substance: FULVESTRANT
     Indication: BREAST CANCER METASTATIC
     Route: 030
     Dates: start: 20210701, end: 20210701

REACTIONS (13)
  - Hypophagia [Unknown]
  - Dysphagia [Recovering/Resolving]
  - Dehydration [Recovering/Resolving]
  - Sepsis [Recovering/Resolving]
  - Fluid intake reduced [Unknown]
  - Abdominal distension [Unknown]
  - Oedema peripheral [Recovering/Resolving]
  - Blood urea increased [Unknown]
  - Hypotension [Recovering/Resolving]
  - Blood creatinine increased [Unknown]
  - Oropharyngeal pain [Unknown]
  - Blood lactic acid increased [Unknown]
  - Asthenia [Unknown]

NARRATIVE: CASE EVENT DATE: 20210704
